FAERS Safety Report 4354231-X (Version None)
Quarter: 2004Q2

REPORT INFORMATION
  Report Type: 
  Country: None (occurrence: None)
  Receive Date: 20040506
  Receipt Date: 20040423
  Transmission Date: 20050107
  Serious: Yes (Hospitalization)
  Sender: FDA-Public Use
  Company Number: 2004/01394

PATIENT
  Age: 72 Year
  Sex: Male

DRUGS (6)
  1. TAGAMET [Suspect]
     Indication: REFLUX OESOPHAGITIS
     Dosage: 400MG PER DAY
     Route: 048
     Dates: start: 20040316, end: 20040326
  2. CATAPRES [Concomitant]
     Dates: start: 20000111
  3. NEUQUINON [Concomitant]
     Dates: start: 20001125
  4. CALTAN [Concomitant]
     Dates: start: 20011021
  5. SOLON [Concomitant]
     Dates: start: 20020617
  6. HAEMODIALYSIS [Concomitant]

REACTIONS (8)
  - ABDOMINAL PAIN [None]
  - CHEST PAIN [None]
  - CONVULSION [None]
  - DIARRHOEA [None]
  - DRUG INEFFECTIVE [None]
  - DYSARTHRIA [None]
  - MYOCLONUS [None]
  - TREMOR [None]
